FAERS Safety Report 18219503 (Version 2)
Quarter: 2021Q2

REPORT INFORMATION
  Report Type: Report from Study
  Country: AR (occurrence: AR)
  Receive Date: 20200901
  Receipt Date: 20210526
  Transmission Date: 20210717
  Serious: Yes (Hospitalization)
  Sender: FDA-Public Use
  Company Number: NVSC2020AR125277

PATIENT
  Age: 76 Year
  Sex: Female

DRUGS (4)
  1. SANDOSTATIN LAR DEPOT [Suspect]
     Active Substance: OCTREOTIDE ACETATE
  2. PARACETAMOL [Concomitant]
     Active Substance: ACETAMINOPHEN
     Indication: COVID-19 PROPHYLAXIS
     Dosage: 1 MG, TID (3 TIMES A DAY)
     Route: 065
  3. SANDOSTATIN LAR DEPOT [Suspect]
     Active Substance: OCTREOTIDE ACETATE
     Indication: NEUROENDOCRINE TUMOUR
     Dosage: 30 MG, QMO
     Route: 065
     Dates: start: 20130601
  4. SANDOSTATIN LAR DEPOT [Suspect]
     Active Substance: OCTREOTIDE ACETATE

REACTIONS (7)
  - Headache [Not Recovered/Not Resolved]
  - Anaemia [Unknown]
  - Influenza [Recovering/Resolving]
  - Oropharyngeal pain [Not Recovered/Not Resolved]
  - Ear pain [Not Recovered/Not Resolved]
  - Pneumonia [Unknown]
  - Memory impairment [Unknown]

NARRATIVE: CASE EVENT DATE: 202003
